FAERS Safety Report 23815614 (Version 1)
Quarter: 2024Q2

REPORT INFORMATION
  Report Type: Spontaneous
  Country: CA (occurrence: CA)
  Receive Date: 20240503
  Receipt Date: 20240503
  Transmission Date: 20240716
  Serious: Yes (Hospitalization, Other)
  Sender: FDA-Public Use
  Company Number: CA-TEVA-VS-3193204

PATIENT
  Age: 81 Year
  Sex: Female

DRUGS (2)
  1. HYDROMORPHONE [Suspect]
     Active Substance: HYDROMORPHONE
     Indication: Pain
     Dosage: DOSAGE FORM: NOT SPECIFIED
     Route: 058
  2. HYDROMORPHONE [Suspect]
     Active Substance: HYDROMORPHONE
     Indication: Pain
     Dosage: DOSAGE FORM: NOT SPECIFIED
     Route: 048

REACTIONS (4)
  - Ileus [Unknown]
  - Intervertebral discitis [Unknown]
  - Pneumonia [Unknown]
  - Septic shock [Unknown]
